FAERS Safety Report 9298507 (Version 1)
Quarter: 2013Q2

REPORT INFORMATION
  Report Type: Spontaneous
  Country: US (occurrence: None)
  Receive Date: 20130515
  Receipt Date: 20130515
  Transmission Date: 20140414
  Serious: Yes (Death, Hospitalization)
  Sender: FDA-Public Use
  Company Number: UTC-032541

PATIENT
  Age: 63 Year
  Sex: Female
  Weight: 44.5 kg

DRUGS (2)
  1. TYVASO (6 MICROGRAM, AEROSOL FOR INHALATION)(TREPROSTINIL SODIUM) [Suspect]
     Indication: COR PULMONALE CHRONIC
     Route: 055
     Dates: start: 20120521
  2. LETAIRIS (AMBRISENTAN) (TABLET) (AMBRISENTAN) [Concomitant]

REACTIONS (2)
  - Pulmonary arterial hypertension [None]
  - Hypoxia [None]
